FAERS Safety Report 24951043 (Version 1)
Quarter: 2025Q1

REPORT INFORMATION
  Report Type: Spontaneous
  Country: US (occurrence: US)
  Receive Date: 20250210
  Receipt Date: 20250210
  Transmission Date: 20250408
  Serious: No
  Sender: JOHNSON AND JOHNSON
  Company Number: US-JNJFOC-20250186567

PATIENT

DRUGS (2)
  1. TOPAMAX [Suspect]
     Active Substance: TOPIRAMATE
     Indication: Product used for unknown indication
     Route: 050
  2. DAYBUE [Suspect]
     Active Substance: TROFINETIDE
     Indication: Rett syndrome
     Route: 048

REACTIONS (7)
  - Diarrhoea [Not Recovered/Not Resolved]
  - Vomiting [Not Recovered/Not Resolved]
  - Decreased appetite [Recovered/Resolved]
  - Dyskinesia [Not Recovered/Not Resolved]
  - Somnolence [Recovered/Resolved]
  - Malaise [Not Recovered/Not Resolved]
  - Hypokinesia [Not Recovered/Not Resolved]
